FAERS Safety Report 6305007-5 (Version None)
Quarter: 2009Q3

REPORT INFORMATION
  Report Type: 
  Country: None (occurrence: None)
  Receive Date: 20090811
  Receipt Date: 20090730
  Transmission Date: 20100115
  Serious: Yes (Hospitalization)
  Sender: FDA-Public Use
  Company Number: DE-ELI_LILLY_AND_COMPANY-DE200908000388

PATIENT
  Age: 63 Year
  Sex: Male

DRUGS (1)
  1. ALIMTA [Suspect]
     Indication: MESOTHELIOMA
     Dosage: 500 MG/M2, UNKNOWN
     Route: 042

REACTIONS (3)
  - DERMATITIS EXFOLIATIVE [None]
  - ENTEROCOLITIS [None]
  - RENAL FAILURE ACUTE [None]
